FAERS Safety Report 5975410-1 (Version None)
Quarter: 2008Q4

REPORT INFORMATION
  Report Type: 
  Country: None (occurrence: None)
  Receive Date: 20081128
  Receipt Date: 20081124
  Transmission Date: 20090506
  Serious: Yes (Other)
  Sender: FDA-Public Use
  Company Number: 2008SP023969

PATIENT
  Sex: Female

DRUGS (2)
  1. NASONEX [Suspect]
     Indication: RHINITIS ALLERGIC
     Dosage: ; QD;
     Dates: start: 20070901, end: 20080801
  2. NASONEX [Suspect]
     Indication: RHINITIS ALLERGIC
     Dosage: ; QD;
     Dates: start: 20080801

REACTIONS (2)
  - GLAUCOMA [None]
  - PHOTOPSIA [None]
